FAERS Safety Report 19402030 (Version 2)
Quarter: 2025Q2

REPORT INFORMATION
  Report Type: Report from Study
  Country: CO (occurrence: CO)
  Receive Date: 20210610
  Receipt Date: 20250627
  Transmission Date: 20250717
  Serious: Yes (Other)
  Sender: TAKEDA
  Company Number: CO-TAKEDA-2021TUS035710

PATIENT
  Age: 14 Year
  Sex: Male

DRUGS (6)
  1. HUMAN COAGULATION FACTOR VIII/VON WILLEBRAND FACTOR COMPLEX [Suspect]
     Active Substance: HUMAN COAGULATION FACTOR VIII/VON WILLEBRAND FACTOR COMPLEX
     Indication: Factor VIII deficiency
     Dosage: 1000 INTERNATIONAL UNIT, 2/WEEK
  2. HUMAN COAGULATION FACTOR VIII/VON WILLEBRAND FACTOR COMPLEX [Suspect]
     Active Substance: HUMAN COAGULATION FACTOR VIII/VON WILLEBRAND FACTOR COMPLEX
  3. HUMAN COAGULATION FACTOR VIII/VON WILLEBRAND FACTOR COMPLEX [Suspect]
     Active Substance: HUMAN COAGULATION FACTOR VIII/VON WILLEBRAND FACTOR COMPLEX
  4. ADYNOVATE [Suspect]
     Active Substance: ANTIHEMOPHILIC FACTOR, HUMAN RECOMBINANT
     Indication: Factor VIII deficiency
  5. ADYNOVATE [Suspect]
     Active Substance: ANTIHEMOPHILIC FACTOR, HUMAN RECOMBINANT
  6. ADYNOVATE [Suspect]
     Active Substance: ANTIHEMOPHILIC FACTOR, HUMAN RECOMBINANT

REACTIONS (2)
  - Haemarthrosis [Unknown]
  - Expired product administered [Unknown]

NARRATIVE: CASE EVENT DATE: 20210513
